FAERS Safety Report 19413285 (Version 2)
Quarter: 2021Q3

REPORT INFORMATION
  Report Type: Report from Study
  Country: None (occurrence: IT)
  Receive Date: 20210614
  Receipt Date: 20210707
  Transmission Date: 20211014
  Serious: Yes (Hospitalization)
  Sender: FDA-Public Use
  Company Number: IT-ABBVIE-21K-083-3940176-00

PATIENT
  Age: 64 Year
  Sex: Male

DRUGS (2)
  1. DUODOPA [Suspect]
     Active Substance: CARBIDOPA\LEVODOPA
  2. DUODOPA [Suspect]
     Active Substance: CARBIDOPA\LEVODOPA
     Indication: PARKINSON^S DISEASE
     Dosage: DAILY DOSE: 1060MG; PUMP SETTING: MD: 6+3 CR: 3 (15H), ED: 1
     Route: 050
     Dates: start: 20210518, end: 20210604

REACTIONS (4)
  - Medical device site swelling [Unknown]
  - Necrosis [Unknown]
  - Stoma site ulcer [Unknown]
  - Stoma site abscess [Unknown]

NARRATIVE: CASE EVENT DATE: 202106
